FAERS Safety Report 6988056-3 (Version None)
Quarter: 2010Q3

REPORT INFORMATION
  Report Type: 
  Country: None (occurrence: None)
  Receive Date: 20100916
  Receipt Date: 20100907
  Transmission Date: 20110219
  Serious: Yes (Other)
  Sender: FDA-Public Use
  Company Number: A0880533A

PATIENT
  Sex: Male

DRUGS (4)
  1. ZIAGEN [Suspect]
     Indication: HIV INFECTION
     Route: 048
  2. VIDEX [Suspect]
     Indication: HIV INFECTION
     Route: 065
  3. REYATAZ [Concomitant]
  4. NORVIR [Concomitant]

REACTIONS (4)
  - CRYPTOGENIC CIRRHOSIS [None]
  - HEPATIC NEOPLASM MALIGNANT [None]
  - OESOPHAGEAL VARICES HAEMORRHAGE [None]
  - PORTAL HYPERTENSION [None]
